FAERS Safety Report 9811536 (Version 4)
Quarter: 2015Q3

REPORT INFORMATION
  Report Type: Spontaneous
  Country: US (occurrence: US)
  Receive Date: 20140110
  Receipt Date: 20150728
  Transmission Date: 20151125
  Serious: Yes (Other)
  Sender: FDA-Public Use
  Company Number: US-SANOFI-AVENTIS-2013SA059201

PATIENT
  Age: 72 Year

DRUGS (3)
  1. PLAVIX [Suspect]
     Active Substance: CLOPIDOGREL BISULFATE
     Indication: ARTERIAL THROMBOSIS
     Route: 048
     Dates: start: 19971101
  2. BABY ASPIRIN [Concomitant]
     Active Substance: ASPIRIN
  3. PLAVIX [Suspect]
     Active Substance: CLOPIDOGREL BISULFATE
     Indication: ARTERIAL THROMBOSIS
     Route: 048
     Dates: end: 20110712

REACTIONS (3)
  - Cerebrovascular accident [Unknown]
  - Haemorrhage [Unknown]
  - Multiple injuries [Unknown]

NARRATIVE: CASE EVENT DATE: 201107
